FAERS Safety Report 6095254-2 (Version None)
Quarter: 2009Q1

REPORT INFORMATION
  Report Type: 
  Country: None (occurrence: None)
  Receive Date: 20090227
  Receipt Date: 20080222
  Transmission Date: 20090719
  Serious: No
  Sender: FDA-Public Use
  Company Number: A0711348A

PATIENT
  Age: 50 Year
  Sex: Male

DRUGS (3)
  1. LAMICTAL [Suspect]
     Indication: BIPOLAR DISORDER
     Dosage: 100MG TWICE PER DAY
     Route: 048
     Dates: start: 20060101
  2. CYMBALTA [Concomitant]
  3. ZYPREXA [Concomitant]

REACTIONS (3)
  - ALOPECIA [None]
  - HYPERSOMNIA [None]
  - WEIGHT INCREASED [None]
